FAERS Safety Report 24346915 (Version 1)
Quarter: 2024Q3

REPORT INFORMATION
  Report Type: Spontaneous
  Country: None (occurrence: CA)
  Receive Date: 20240921
  Receipt Date: 20240921
  Transmission Date: 20241017
  Serious: Yes (Hospitalization, Other)
  Sender: TEVA
  Company Number: CA-TEVA-VS-3242975

PATIENT
  Sex: Female

DRUGS (2)
  1. DULOXETINE HYDROCHLORIDE [Suspect]
     Active Substance: DULOXETINE HYDROCHLORIDE
     Indication: Depression
     Route: 065
  2. DIAZEPAM [Suspect]
     Active Substance: DIAZEPAM
     Indication: Anxiety
     Route: 065

REACTIONS (5)
  - Epilepsy [Recovered/Resolved]
  - Postictal psychosis [Recovered/Resolved]
  - Drug withdrawal convulsions [Recovered/Resolved]
  - Unmasking of previously unidentified disease [Recovered/Resolved]
  - Drug withdrawal syndrome [Recovered/Resolved]
